FAERS Safety Report 6143948-2 (Version None)
Quarter: 2009Q2

REPORT INFORMATION
  Report Type: 
  Country: None (occurrence: None)
  Receive Date: 20090406
  Receipt Date: 20090326
  Transmission Date: 20091009
  Serious: No
  Sender: FDA-Public Use
  Company Number: BR-JNJFOC-20090307190

PATIENT
  Sex: Female

DRUGS (6)
  1. DURAGESIC-100 [Suspect]
     Indication: TRIGEMINAL NEURALGIA
     Route: 062
  2. MORPHINE [Concomitant]
     Indication: PAIN
     Route: 065
  3. GABAPENTIN [Concomitant]
     Indication: PAIN
     Route: 065
  4. METHADONE [Concomitant]
     Indication: PAIN
     Route: 065
  5. OMEPRAZOLE [Concomitant]
     Route: 065
  6. DIPYRONE [Concomitant]
     Indication: PAIN
     Dosage: 40 DROPS/SPORADICALLY
     Route: 065

REACTIONS (2)
  - PRODUCT QUALITY ISSUE [None]
  - WRONG TECHNIQUE IN DRUG USAGE PROCESS [None]
